FAERS Safety Report 7715792-3 (Version None)
Quarter: 2011Q3

REPORT INFORMATION
  Report Type: 
  Country: None (occurrence: None)
  Receive Date: 20110829
  Receipt Date: 20110829
  Transmission Date: 20111222
  Serious: Yes (Death)
  Sender: FDA-Public Use
  Company Number: None

PATIENT
  Age: 61 Year
  Sex: Male
  Weight: 79.378 kg

DRUGS (2)
  1. CYMBALTA [Suspect]
     Indication: SLEEP DISORDER
     Dates: start: 20110505, end: 20110609
  2. CYMBALTA [Suspect]
     Indication: ANXIETY
     Dates: start: 20110505, end: 20110609

REACTIONS (3)
  - HEAD INJURY [None]
  - INTENTIONAL SELF-INJURY [None]
  - GUN SHOT WOUND [None]
